FAERS Safety Report 9493141 (Version 3)
Quarter: 2014Q2

REPORT INFORMATION
  Report Type: Report from Study
  Country: DE (occurrence: DE)
  Receive Date: 20130902
  Receipt Date: 20140407
  Transmission Date: 20141212
  Serious: Yes (Death, Life-Threatening, Hospitalization)
  Sender: FDA-Public Use
  Company Number: DE-ROCHE-1268193

PATIENT
  Age: 38 Year
  Sex: Male

DRUGS (4)
  1. MABTHERA [Suspect]
     Indication: DIFFUSE LARGE B-CELL LYMPHOMA
     Route: 042
     Dates: start: 20060419, end: 20060426
  2. CISPLATIN [Concomitant]
     Indication: DIFFUSE LARGE B-CELL LYMPHOMA
     Route: 042
     Dates: start: 20060419, end: 20060426
  3. CYTARABIN [Concomitant]
     Indication: DIFFUSE LARGE B-CELL LYMPHOMA
     Route: 042
     Dates: start: 20060419, end: 20060426
  4. DEXAMETHASONE [Concomitant]

REACTIONS (6)
  - Aspergillus infection [Fatal]
  - Alopecia [Unknown]
  - Neutropenia [Unknown]
  - Sepsis [Unknown]
  - Thrombocytopenia [Unknown]
  - Coagulopathy [Unknown]
